FAERS Safety Report 25665368 (Version 1)
Quarter: 2025Q3

REPORT INFORMATION
  Report Type: Spontaneous
  Country: US (occurrence: US)
  Receive Date: 20250811
  Receipt Date: 20250811
  Transmission Date: 20251020
  Serious: Yes (Hospitalization, Other)
  Sender: ALEXION PHARMACEUTICALS
  Company Number: US-ASTRAZENECA-202508USA004682US

PATIENT
  Age: 60 Year
  Sex: Male
  Weight: 74.6 kg

DRUGS (4)
  1. FARXIGA [Suspect]
     Active Substance: DAPAGLIFLOZIN PROPANEDIOL
     Route: 065
  2. VYNDAMAX [Suspect]
     Active Substance: TAFAMIDIS
     Route: 065
  3. TAFAMIDIS [Suspect]
     Active Substance: TAFAMIDIS
     Route: 065
  4. METOPROLOL TARTRATE [Suspect]
     Active Substance: METOPROLOL TARTRATE
     Route: 065

REACTIONS (16)
  - Cardiac failure congestive [Unknown]
  - Cardiac amyloidosis [Unknown]
  - Pneumonia [Unknown]
  - Cardiac failure [Unknown]
  - Coronary artery occlusion [Unknown]
  - Ejection fraction decreased [Unknown]
  - Peripheral swelling [Unknown]
  - Fatigue [Unknown]
  - Weight decreased [Unknown]
  - Cough [Unknown]
  - Skin discolouration [Unknown]
  - Ill-defined disorder [Unknown]
  - Fatigue [Unknown]
  - Insomnia [Unknown]
  - Palpitations [Unknown]
  - Decreased activity [Unknown]
